FAERS Safety Report 18314355 (Version 1)
Quarter: 2020Q3

REPORT INFORMATION
  Report Type: Spontaneous
  Country: DE (occurrence: DE)
  Receive Date: 20200925
  Receipt Date: 20200925
  Transmission Date: 20201103
  Serious: Yes (Other)
  Sender: FDA-Public Use
  Company Number: DE-UCBSA-2020038447

PATIENT
  Age: 34 Year
  Sex: Female
  Weight: 89 kg

DRUGS (3)
  1. LEVETIRACETAM. [Suspect]
     Active Substance: LEVETIRACETAM
     Indication: EPILEPSY
     Dosage: 250 MILLIGRAM, 2X/DAY (BID)
     Route: 048
     Dates: start: 20190221, end: 20191205
  2. L?THYROXINE [LEVOTHYROXINE SODIUM] [Concomitant]
     Active Substance: LEVOTHYROXINE SODIUM
     Indication: HYPOTHYROIDISM
     Dosage: 75 MICROGRAM DAILY
     Route: 048
     Dates: start: 20190221, end: 20191205
  3. SOBELIN [CLINDAMYCIN HYDROCHLORIDE] [Concomitant]
     Indication: PRODUCT USED FOR UNKNOWN INDICATION
     Dosage: FROM GW 16 5/7 TO 17 5/7 AND AGAIN FROM GW 22 5/7 UNTIL 23 5/7.
     Route: 067
     Dates: start: 20190618, end: 20190806

REACTIONS (2)
  - Maternal exposure before pregnancy [Unknown]
  - Gestational diabetes [Unknown]

NARRATIVE: CASE EVENT DATE: 2019
